FAERS Safety Report 18546685 (Version 5)
Quarter: 2022Q2

REPORT INFORMATION
  Report Type: Spontaneous
  Country: US (occurrence: US)
  Receive Date: 20201125
  Receipt Date: 20220512
  Transmission Date: 20220721
  Serious: Yes (Other)
  Sender: FDA-Public Use
  Company Number: US-TAKEDA-2020TUS052636

PATIENT
  Sex: Male
  Weight: 77 kg

DRUGS (17)
  1. ENTYVIO [Suspect]
     Active Substance: VEDOLIZUMAB
     Indication: Crohn^s disease
     Dosage: 300 MILLIGRAM
     Route: 042
     Dates: start: 2017
  2. ENTYVIO [Suspect]
     Active Substance: VEDOLIZUMAB
     Dosage: 60 MILLIGRAM, Q8WEEKS
     Route: 065
     Dates: start: 2017
  3. DEXILANT [Suspect]
     Active Substance: DEXLANSOPRAZOLE
     Indication: Product used for unknown indication
     Dosage: 60 MILLIGRAM, QD
     Route: 048
  4. COLESTIPOL [Suspect]
     Active Substance: COLESTIPOL
     Indication: Product used for unknown indication
     Dosage: UNK
     Route: 065
  5. LOMOTIL [Suspect]
     Active Substance: ATROPINE SULFATE\DIPHENOXYLATE HYDROCHLORIDE
     Indication: Product used for unknown indication
     Dosage: UNK
     Route: 065
  6. LISINOPRIL [Concomitant]
     Active Substance: LISINOPRIL
     Indication: Hypertension
     Dosage: 60 MILLIGRAM, BID
     Route: 048
  7. NORVASC [Concomitant]
     Active Substance: AMLODIPINE BESYLATE
     Indication: Hypertension
     Dosage: 5 MILLIGRAM, QD
     Route: 048
  8. AVASTIN [Concomitant]
     Active Substance: BEVACIZUMAB
  9. CHOLESTYRAMINE [Concomitant]
     Active Substance: CHOLESTYRAMINE
     Dosage: UNK
  10. VALTREX [Concomitant]
     Active Substance: VALACYCLOVIR HYDROCHLORIDE
     Dates: start: 20210111
  11. ZOLOFT [Concomitant]
     Active Substance: SERTRALINE HYDROCHLORIDE
     Dosage: UNK
  12. CENOBAMATE [Concomitant]
     Active Substance: CENOBAMATE
     Dosage: UNK
  13. VIMPAT [Concomitant]
     Active Substance: LACOSAMIDE
     Dosage: UNK
  14. NORVASC [Concomitant]
     Active Substance: AMLODIPINE BESYLATE
     Indication: Hypertension
     Dosage: UNK
  15. CHOLESTYRAMINE LIGHT [Concomitant]
     Active Substance: CHOLESTYRAMINE
     Indication: Diarrhoea
  16. CALCIUM [Concomitant]
     Active Substance: CALCIUM
     Dosage: UNK
  17. ACIPHEX SPRINKLE [Concomitant]
     Active Substance: RABEPRAZOLE SODIUM
     Dosage: UNK

REACTIONS (8)
  - Intestinal operation [Unknown]
  - Epilepsy [Unknown]
  - Hepatic steatosis [Unknown]
  - Diarrhoea [Unknown]
  - Herpes zoster [Unknown]
  - Headache [Unknown]
  - Constipation [Unknown]
  - Off label use [Unknown]
